FAERS Safety Report 14711119 (Version 3)
Quarter: 2019Q2

REPORT INFORMATION
  Report Type: Spontaneous
  Country: US (occurrence: US)
  Receive Date: 20180403
  Receipt Date: 20190611
  Transmission Date: 20190711
  Serious: Yes (Hospitalization)
  Sender: FDA-Public Use
  Company Number: US-PFIZER INC-2018128626

PATIENT
  Age: 69 Year
  Sex: Female
  Weight: 104.31 kg

DRUGS (1)
  1. IBRANCE [Suspect]
     Active Substance: PALBOCICLIB
     Indication: BREAST CANCER METASTATIC
     Dosage: 125 MG, CYCLIC (DAYS 1-21 Q 28 DAYS)
     Route: 048
     Dates: start: 20180302

REACTIONS (9)
  - Arthritis [Unknown]
  - Arthralgia [Unknown]
  - Muscular weakness [Unknown]
  - Limb discomfort [Unknown]
  - Joint swelling [Unknown]
  - Gait inability [Unknown]
  - Ankle fracture [Unknown]
  - Fall [Unknown]
  - Asthenia [Unknown]
